FAERS Safety Report 10223039 (Version 1)
Quarter: 2014Q2

REPORT INFORMATION
  Report Type: Report from Study
  Country: PK (occurrence: PK)
  Receive Date: 20140607
  Receipt Date: 20140607
  Transmission Date: 20141212
  Serious: Yes (Death)
  Sender: FDA-Public Use
  Company Number: PHHY2014PK068922

PATIENT
  Sex: Male

DRUGS (2)
  1. AFINITOR [Suspect]
     Indication: GASTROINTESTINAL STROMAL TUMOUR
     Dosage: 10 MG, QD
     Route: 048
     Dates: start: 20140324, end: 20140503
  2. AFINITOR [Suspect]
     Indication: OFF LABEL USE

REACTIONS (1)
  - Death [Fatal]
